FAERS Safety Report 8623874-7 (Version None)
Quarter: 2012Q3

REPORT INFORMATION
  Report Type: 
  Country: None (occurrence: None)
  Receive Date: 20120827
  Receipt Date: 20120821
  Transmission Date: 20120928
  Serious: No
  Sender: FDA-Public Use
  Company Number: US-BAYER-2012-087377

PATIENT
  Age: 43 Year
  Sex: Female

DRUGS (1)
  1. EOVIST [Suspect]
     Indication: ABDOMEN SCAN
     Dosage: 7 ML, ONCE
     Dates: start: 20120820, end: 20120820

REACTIONS (3)
  - LIP SWELLING [None]
  - THROAT IRRITATION [None]
  - EYE SWELLING [None]
